FAERS Safety Report 4360292-4 (Version None)
Quarter: 2004Q2

REPORT INFORMATION
  Report Type: 
  Country: None (occurrence: None)
  Receive Date: 20040519
  Receipt Date: 20040507
  Transmission Date: 20050107
  Serious: Yes (Death)
  Sender: FDA-Public Use
  Company Number: US-JNJFOC-20040501651

PATIENT
  Sex: Female

DRUGS (15)
  1. INFLIXIMAB [Suspect]
     Route: 042
  2. INFLIXIMAB [Suspect]
     Indication: RHEUMATOID ARTHRITIS
     Route: 042
  3. PLAQUENIL [Concomitant]
  4. ACCURETIC [Concomitant]
  5. ACCURETIC [Concomitant]
     Dosage: 10/12.5 MG DAILY
  6. METHOTREXATE [Concomitant]
  7. FOLIC ACID [Concomitant]
  8. LANOXIN [Concomitant]
  9. PLAVIX [Concomitant]
  10. ASPIRIN [Concomitant]
  11. ASPIRIN [Concomitant]
  12. ASPIRIN [Concomitant]
  13. PREDNISONE [Concomitant]
  14. FOSAMAX [Concomitant]
  15. CALCIUM [Concomitant]

REACTIONS (1)
  - PNEUMONIA [None]
